FAERS Safety Report 16410385 (Version 2)
Quarter: 2019Q2

REPORT INFORMATION
  Report Type: Spontaneous
  Country: US (occurrence: US)
  Receive Date: 20190610
  Receipt Date: 20190620
  Transmission Date: 20190711
  Serious: No
  Sender: FDA-Public Use
  Company Number: US-PFIZER INC-2019245856

PATIENT
  Age: 44 Year
  Sex: Female

DRUGS (15)
  1. DOCETAXEL. [Suspect]
     Active Substance: DOCETAXEL
     Indication: INVASIVE DUCTAL BREAST CARCINOMA
     Dosage: 150 MG, CYCLIC (06 CYCLES, EVERY THREE WEEKS)
     Dates: start: 20110407, end: 20110721
  2. TAXOTERE [Suspect]
     Active Substance: DOCETAXEL
     Indication: INVASIVE DUCTAL BREAST CARCINOMA
     Dosage: 150 MG, CYCLIC (06 CYCLES, EVERY THREE WEEKS)
     Dates: start: 20110407, end: 20110721
  3. LISINOPRIL. [Concomitant]
     Active Substance: LISINOPRIL
     Dosage: UNK
  4. HYDROCHLOROTHIAZIDE. [Concomitant]
     Active Substance: HYDROCHLOROTHIAZIDE
     Dosage: UNK
  5. METOPROLOL. [Concomitant]
     Active Substance: METOPROLOL
     Dosage: UNK
  6. AMBIEN [Concomitant]
     Active Substance: ZOLPIDEM TARTRATE
     Dosage: UNK
  7. RANITIDINE. [Concomitant]
     Active Substance: RANITIDINE
     Dosage: UNK
  8. MOBIC [Concomitant]
     Active Substance: MELOXICAM
     Dosage: UNK
  9. VICODIN [Concomitant]
     Active Substance: ACETAMINOPHEN\HYDROCODONE BITARTRATE
     Dosage: UNK
  10. NEOSAR [Concomitant]
     Active Substance: CYCLOPHOSPHAMIDE
     Indication: CHEMOTHERAPY
     Dosage: UNK
  11. DOXYCYCLINE HYCLATE. [Concomitant]
     Active Substance: DOXYCYCLINE HYCLATE
     Dosage: UNK
  12. ZOFRAN [Concomitant]
     Active Substance: ONDANSETRON HYDROCHLORIDE
     Dosage: UNK
  13. CARAFATE [Concomitant]
     Active Substance: SUCRALFATE
     Dosage: UNK
  14. PROMETHAZINE [Concomitant]
     Active Substance: PROMETHAZINE\PROMETHAZINE HYDROCHLORIDE
     Dosage: UNK
  15. ALEVE [Concomitant]
     Active Substance: NAPROXEN SODIUM
     Dosage: UNK

REACTIONS (5)
  - Hair colour changes [Not Recovered/Not Resolved]
  - Hair texture abnormal [Not Recovered/Not Resolved]
  - Madarosis [Not Recovered/Not Resolved]
  - Alopecia [Not Recovered/Not Resolved]
  - Hair disorder [Not Recovered/Not Resolved]

NARRATIVE: CASE EVENT DATE: 2008
